FAERS Safety Report 4747836-5 (Version None)
Quarter: 2005Q3

REPORT INFORMATION
  Report Type: 
  Country: None (occurrence: None)
  Receive Date: 20050816
  Receipt Date: 20050803
  Transmission Date: 20060218
  Serious: Yes (Hospitalization)
  Sender: FDA-Public Use
  Company Number: OMPQ-PR-0508L0-1120

PATIENT
  Age: 63 Year
  Sex: Male

DRUGS (2)
  1. OMNIPAQUE 300 [Suspect]
     Indication: ANEURYSM
     Dosage: 23 ML, SINGLE DOSE, I.A.
     Route: 013
  2. OMNIPAQUE 300 [Suspect]
     Indication: ARTERIOVENOUS MALFORMATION
     Dosage: 23 ML, SINGLE DOSE, I.A.
     Route: 013

REACTIONS (8)
  - CLAUSTROPHOBIA [None]
  - CONFUSIONAL STATE [None]
  - DISORIENTATION [None]
  - GLOBAL AMNESIA [None]
  - HEADACHE [None]
  - HYPERHIDROSIS [None]
  - MEMORY IMPAIRMENT [None]
  - PROCEDURAL COMPLICATION [None]
